FAERS Safety Report 13639911 (Version 1)
Quarter: 2017Q2

REPORT INFORMATION
  Report Type: Spontaneous
  Country: US (occurrence: US)
  Receive Date: 20170609
  Receipt Date: 20170609
  Transmission Date: 20170830
  Serious: Yes (Other)
  Sender: FDA-Public Use
  Company Number: US-ROCHE-1404924

PATIENT
  Sex: Female

DRUGS (8)
  1. LYRICA [Concomitant]
     Active Substance: PREGABALIN
     Indication: PAIN
  2. CHAMOMILE [Concomitant]
     Active Substance: CHAMOMILE
  3. VALERIAN ROOT [Concomitant]
     Active Substance: VALERIAN
  4. AMBIEN [Concomitant]
     Active Substance: ZOLPIDEM TARTRATE
  5. MELATONIN [Concomitant]
     Active Substance: MELATONIN
  6. KLONOPIN [Suspect]
     Active Substance: CLONAZEPAM
     Indication: ANXIETY
  7. KLONOPIN [Suspect]
     Active Substance: CLONAZEPAM
     Indication: PANIC ATTACK
     Dosage: DAILY (UNKNOWN IF THESE ARE DIVIDED DOSES)
     Route: 065
     Dates: start: 1980
  8. PRAZOSIN. [Concomitant]
     Active Substance: PRAZOSIN
     Indication: NIGHTMARE

REACTIONS (1)
  - Drug withdrawal syndrome [Unknown]
